FAERS Safety Report 16795248 (Version 5)
Quarter: 2020Q1

REPORT INFORMATION
  Report Type: Report from Study
  Country: JP (occurrence: JP)
  Receive Date: 20190911
  Receipt Date: 20200124
  Transmission Date: 20200409
  Serious: Yes (Hospitalization, Other)
  Sender: FDA-Public Use
  Company Number: JP-ASTRAZENECA-2019SF06523

PATIENT
  Age: 21591 Day
  Sex: Female

DRUGS (42)
  1. DURVALUMAB. [Suspect]
     Active Substance: DURVALUMAB
     Indication: OVARIAN CANCER
     Dosage: 1120 MG Q3W FROM DAY 1 OF CYCLE 2 FOR A TOTAL OF 15 MONTHS OF TOTAL TREATMENT
     Route: 042
     Dates: start: 20190612, end: 20190612
  2. DURVALUMAB. [Suspect]
     Active Substance: DURVALUMAB
     Indication: OVARIAN CANCER
     Dosage: 1120 MG Q3W FROM DAY 1 OF CYCLE 2 FOR A TOTAL OF 15 MONTHS OF TOTAL TREATMENT
     Route: 042
     Dates: start: 20190703, end: 20190703
  3. OLAPARIB. [Suspect]
     Active Substance: OLAPARIB
     Indication: OVARIAN CANCER
     Route: 048
  4. BEVACIZUMAB. [Concomitant]
     Active Substance: BEVACIZUMAB
     Indication: OVARIAN CANCER
     Dosage: 900.0MG/KG ONCE/SINGLE ADMINISTRATION
     Route: 065
     Dates: start: 20200109, end: 20200109
  5. CARBOPLATIN. [Concomitant]
     Active Substance: CARBOPLATIN
     Indication: OVARIAN CANCER
     Dosage: 652.0MG ONCE/SINGLE ADMINISTRATION
     Route: 065
     Dates: start: 20190703, end: 20190703
  6. ZOLPIDEM TARTRATE. [Concomitant]
     Active Substance: ZOLPIDEM TARTRATE
     Indication: INSOMNIA
     Route: 048
     Dates: start: 20190520
  7. CARVEDILOL. [Concomitant]
     Active Substance: CARVEDILOL
     Indication: HYPERTHYROIDISM
     Route: 048
     Dates: start: 20190607
  8. DURVALUMAB. [Suspect]
     Active Substance: DURVALUMAB
     Indication: OVARIAN CANCER
     Dosage: 1120 MG Q3W FROM DAY 1 OF CYCLE 2 FOR A TOTAL OF 15 MONTHS OF TOTAL TREATMENT
     Route: 042
     Dates: start: 20190327, end: 20190327
  9. PACLITAXEL. [Concomitant]
     Active Substance: PACLITAXEL
     Indication: OVARIAN CANCER
     Dosage: 295.0MG ONCE/SINGLE ADMINISTRATION
     Route: 065
     Dates: start: 20190306, end: 20190306
  10. PACLITAXEL. [Concomitant]
     Active Substance: PACLITAXEL
     Indication: OVARIAN CANCER
     Dosage: 295.0MG ONCE/SINGLE ADMINISTRATION
     Route: 065
     Dates: start: 20190703, end: 20190703
  11. SOLDEM 3A [Concomitant]
     Active Substance: CARBOHYDRATES\POTASSIUM CHLORIDE\SODIUM CHLORIDE\SODIUM LACTATE
     Indication: FLUID REPLACEMENT
     Route: 042
     Dates: start: 20190515, end: 20190515
  12. MAGNESIUM OXIDE. [Concomitant]
     Active Substance: MAGNESIUM OXIDE
     Indication: CONSTIPATION
     Route: 048
     Dates: start: 20190305
  13. BEVACIZUMAB. [Concomitant]
     Active Substance: BEVACIZUMAB
     Indication: OVARIAN CANCER
     Dosage: 970.0MG ONCE/SINGLE ADMINISTRATION
     Route: 065
     Dates: start: 20190327, end: 20190327
  14. CARBOPLATIN. [Concomitant]
     Active Substance: CARBOPLATIN
     Indication: OVARIAN CANCER
     Dosage: 652.0MG ONCE/SINGLE ADMINISTRATION
     Route: 065
     Dates: start: 20190417, end: 20190417
  15. LOXOPROFEN [Concomitant]
     Active Substance: LOXOPROFEN
     Indication: HEADACHE
     Route: 048
     Dates: start: 20190329
  16. BISONO [Concomitant]
     Active Substance: BISOPROLOL
     Indication: HYPERTHYROIDISM
     Route: 062
     Dates: start: 20190530
  17. DEXART [Concomitant]
     Active Substance: DEXAMETHASONE SODIUM PHOSPHATE
     Indication: PREMEDICATION
     Route: 042
     Dates: start: 20190306
  18. NAUZELIN [Concomitant]
     Active Substance: DOMPERIDONE
     Indication: CONSTIPATION
     Route: 048
  19. MAGNESIUM OXIDE. [Concomitant]
     Active Substance: MAGNESIUM OXIDE
     Indication: CONSTIPATION
     Route: 048
     Dates: start: 20190305
  20. GRANISETRON [Concomitant]
     Active Substance: GRANISETRON
     Indication: PREMEDICATION
     Route: 042
     Dates: start: 20190306
  21. BEVACIZUMAB. [Concomitant]
     Active Substance: BEVACIZUMAB
     Indication: OVARIAN CANCER
     Dosage: 900.0MG/KG ONCE/SINGLE ADMINISTRATION
     Route: 065
     Dates: start: 20191010, end: 20191010
  22. CARBOPLATIN. [Concomitant]
     Active Substance: CARBOPLATIN
     Indication: OVARIAN CANCER
     Dosage: 652.0MG ONCE/SINGLE ADMINISTRATION
     Route: 065
     Dates: start: 20190306, end: 20190306
  23. NERIZA [Concomitant]
     Indication: HAEMORRHOIDS
     Dosage: 1 APPLICATION, DAILY
     Route: 054
     Dates: start: 20190417
  24. RANITIDINE. [Concomitant]
     Active Substance: RANITIDINE
     Indication: PREMEDICATION
     Route: 042
     Dates: start: 20190306
  25. OMNIPAQUE [Concomitant]
     Active Substance: IOHEXOL
     Indication: SCAN WITH CONTRAST
     Route: 042
     Dates: start: 20190301
  26. DURVALUMAB. [Suspect]
     Active Substance: DURVALUMAB
     Indication: OVARIAN CANCER
     Dosage: 1120 MG Q3W FROM DAY 1 OF CYCLE 2 FOR A TOTAL OF 15 MONTHS OF TOTAL TREATMENT
     Route: 042
     Dates: start: 20190417, end: 20190417
  27. BEVACIZUMAB. [Concomitant]
     Active Substance: BEVACIZUMAB
     Indication: OVARIAN CANCER
     Dosage: 900.0MG/KG ONCE/SINGLE ADMINISTRATION
     Route: 065
     Dates: start: 20191031, end: 20191031
  28. CARBOPLATIN. [Concomitant]
     Active Substance: CARBOPLATIN
     Indication: OVARIAN CANCER
     Dosage: 652.0MG ONCE/SINGLE ADMINISTRATION
     Route: 065
     Dates: start: 20190327, end: 20190327
  29. PACLITAXEL. [Concomitant]
     Active Substance: PACLITAXEL
     Indication: OVARIAN CANCER
     Dosage: 295.0MG ONCE/SINGLE ADMINISTRATION
     Route: 065
     Dates: start: 20190612, end: 20190612
  30. LOXOPROFEN [Concomitant]
     Active Substance: LOXOPROFEN
     Indication: HEADACHE
     Route: 048
     Dates: start: 20190517, end: 20190523
  31. SOLACET F [Concomitant]
     Active Substance: CALCIUM CHLORIDE\POTASSIUM CHLORIDE\SODIUM ACETATE\SODIUM CHLORIDE
     Indication: FLUID REPLACEMENT
     Route: 042
     Dates: start: 20190306
  32. BEVACIZUMAB. [Concomitant]
     Active Substance: BEVACIZUMAB
     Indication: OVARIAN CANCER
     Dosage: 970.0MG ONCE/SINGLE ADMINISTRATION
     Route: 065
     Dates: start: 20190612, end: 20190612
  33. BEVACIZUMAB. [Concomitant]
     Active Substance: BEVACIZUMAB
     Indication: OVARIAN CANCER
     Dosage: 970.0MG/KG ONCE/SINGLE ADMINISTRATION
     Route: 065
     Dates: start: 20190703, end: 20190703
  34. BEVACIZUMAB. [Concomitant]
     Active Substance: BEVACIZUMAB
     Indication: OVARIAN CANCER
     Dosage: 900.0MG/KG ONCE/SINGLE ADMINISTRATION
     Route: 065
     Dates: start: 20191212, end: 20191212
  35. CARBOPLATIN. [Concomitant]
     Active Substance: CARBOPLATIN
     Indication: OVARIAN CANCER
     Dosage: 652.0MG ONCE/SINGLE ADMINISTRATION
     Route: 065
     Dates: start: 20190612, end: 20190612
  36. PACLITAXEL. [Concomitant]
     Active Substance: PACLITAXEL
     Indication: OVARIAN CANCER
     Dosage: 295.0MG ONCE/SINGLE ADMINISTRATION
     Route: 065
     Dates: start: 20190327, end: 20190327
  37. POLARAMINE [Concomitant]
     Active Substance: DEXCHLORPHENIRAMINE MALEATE
     Indication: PREMEDICATION
     Route: 042
     Dates: start: 20190306
  38. SOLDEM 3A [Concomitant]
     Active Substance: CARBOHYDRATES\POTASSIUM CHLORIDE\SODIUM CHLORIDE\SODIUM LACTATE
     Indication: FLUID REPLACEMENT
     Route: 042
     Dates: start: 20190307
  39. SOLDEM 3A [Concomitant]
     Active Substance: CARBOHYDRATES\POTASSIUM CHLORIDE\SODIUM CHLORIDE\SODIUM LACTATE
     Indication: FLUID REPLACEMENT
     Route: 042
     Dates: start: 20190513, end: 20190514
  40. BEVACIZUMAB. [Concomitant]
     Active Substance: BEVACIZUMAB
     Indication: OVARIAN CANCER
     Dosage: 900.0MG/KG ONCE/SINGLE ADMINISTRATION
     Route: 065
     Dates: start: 20191121, end: 20191121
  41. PACLITAXEL. [Concomitant]
     Active Substance: PACLITAXEL
     Indication: OVARIAN CANCER
     Dosage: 295.0MG ONCE/SINGLE ADMINISTRATION
     Route: 065
     Dates: start: 20190417, end: 20190417
  42. ALOSENN [Concomitant]
     Indication: CONSTIPATION
     Route: 048
     Dates: start: 20190308

REACTIONS (2)
  - Drug-induced liver injury [Recovered/Resolved]
  - Hepatic function abnormal [Not Recovered/Not Resolved]

NARRATIVE: CASE EVENT DATE: 20190711
